FAERS Safety Report 4551748-X (Version None)
Quarter: 2005Q1

REPORT INFORMATION
  Report Type: 
  Country: None (occurrence: None)
  Receive Date: 20050111
  Receipt Date: 20041229
  Transmission Date: 20050727
  Serious: Yes (Death)
  Sender: FDA-Public Use
  Company Number: 2004AP02863

PATIENT
  Age: 87 Year
  Sex: Female

DRUGS (1)
  1. ACCOLATE [Suspect]
     Dosage: 40 MG DAILY PO
     Route: 048
     Dates: start: 20011219

REACTIONS (5)
  - ACUTE RESPIRATORY FAILURE [None]
  - GLOMERULONEPHRITIS ACUTE [None]
  - GLOMERULONEPHRITIS CHRONIC [None]
  - HEPATIC CIRRHOSIS [None]
  - RENAL FAILURE CHRONIC [None]
